FAERS Safety Report 8987960 (Version 1)
Quarter: 2012Q4

REPORT INFORMATION
  Report Type: 
  Country: US (occurrence: US)
  Receive Date: 20121227
  Receipt Date: 20121227
  Transmission Date: 20130627
  Serious: No
  Sender: FDA-Public Use
  Company Number: US-ASTRAZENECA-2012SE92896

PATIENT
  Age: 15 Year
  Sex: Female
  Weight: 59 kg

DRUGS (3)
  1. BUDESONIDE [Suspect]
     Route: 055
     Dates: start: 2011
  2. NEXIUM [Suspect]
     Indication: GASTROOESOPHAGEAL REFLUX DISEASE
     Dosage: 40 MG TOTAL DAILY DOSE, FREQUENCY BID
     Route: 048
     Dates: start: 201112
  3. ALBUTEROL [Concomitant]

REACTIONS (5)
  - Gastric pH decreased [Not Recovered/Not Resolved]
  - Vocal cord disorder [Recovering/Resolving]
  - Constipation [Not Recovered/Not Resolved]
  - Diarrhoea [Recovering/Resolving]
  - Intentional drug misuse [Not Recovered/Not Resolved]
